FAERS Safety Report 6827355-2 (Version None)
Quarter: 2010Q3

REPORT INFORMATION
  Report Type: 
  Country: None (occurrence: None)
  Receive Date: 20100709
  Receipt Date: 20070111
  Transmission Date: 20110219
  Serious: Yes (Other)
  Sender: FDA-Public Use
  Company Number: US-PFIZER INC-2007003869

PATIENT
  Sex: Male
  Weight: 86.2 kg

DRUGS (6)
  1. CHANTIX [Suspect]
     Indication: SMOKING CESSATION THERAPY
     Dates: start: 20070106
  2. INSULIN [Concomitant]
     Indication: BLOOD GLUCOSE INCREASED
  3. CARDIAC THERAPY [Concomitant]
  4. PLAVIX [Concomitant]
  5. CALCIUM CARBONATE [Concomitant]
  6. LASIX [Concomitant]

REACTIONS (2)
  - BLOOD GLUCOSE DECREASED [None]
  - SOMNOLENCE [None]
